FAERS Safety Report 8199000-8 (Version None)
Quarter: 2012Q1

REPORT INFORMATION
  Report Type: 
  Country: None (occurrence: None)
  Receive Date: 20120309
  Receipt Date: 20120301
  Transmission Date: 20120608
  Serious: Yes (Other)
  Sender: FDA-Public Use
  Company Number: US-ALLERGAN-1202937US

PATIENT
  Age: 44 Year
  Sex: Female

DRUGS (3)
  1. BOTOX COSMETIC [Suspect]
     Indication: SKIN WRINKLING
     Dosage: 32 UNITS, SINGLE
     Route: 030
     Dates: start: 20120215, end: 20120215
  2. RADIESSE FILLER [Concomitant]
     Indication: SKIN COSMETIC PROCEDURE
     Dosage: 3 ML, SINGLE
     Dates: start: 20120215, end: 20120215
  3. NEXIUM [Concomitant]
     Indication: GASTROOESOPHAGEAL REFLUX DISEASE
     Dosage: 20 MG, UNK
     Route: 048

REACTIONS (10)
  - CIRCUMORAL OEDEMA [None]
  - EAR PAIN [None]
  - DRY EYE [None]
  - DYSARTHRIA [None]
  - PAROSMIA [None]
  - SPEECH DISORDER [None]
  - FACIAL PAIN [None]
  - VIITH NERVE PARALYSIS [None]
  - FACIAL PARESIS [None]
  - EYELID PTOSIS [None]
